FAERS Safety Report 17089847 (Version 1)
Quarter: 2019Q4

REPORT INFORMATION
  Report Type: Report from Study
  Country: None (occurrence: CA)
  Receive Date: 20191128
  Receipt Date: 20191128
  Transmission Date: 20200122
  Serious: Yes (Other)
  Sender: FDA-Public Use
  Company Number: CA-ABBVIE-19K-028-3173507-00

PATIENT
  Sex: Male

DRUGS (1)
  1. HUMIRA [Suspect]
     Active Substance: ADALIMUMAB
     Indication: CROHN^S DISEASE
     Route: 058
     Dates: start: 20171208

REACTIONS (4)
  - Colitis [Unknown]
  - Clostridium difficile infection [Unknown]
  - Neuropathy peripheral [Unknown]
  - Pouchitis [Unknown]

NARRATIVE: CASE EVENT DATE: 2017
